FAERS Safety Report 6796322-X (Version None)
Quarter: 2010Q2

REPORT INFORMATION
  Report Type: 
  Country: None (occurrence: None)
  Receive Date: 20100622
  Receipt Date: 20100615
  Transmission Date: 20101027
  Serious: Yes (Other)
  Sender: FDA-Public Use
  Company Number: 2010EU002243

PATIENT
  Sex: Female
  Weight: 87 kg

DRUGS (1)
  1. SOLIFENACIN SUCCINATE (VESICARE) [Suspect]
     Indication: HYPERTONIC BLADDER
     Dates: start: 20100427, end: 20100501

REACTIONS (3)
  - DRY MOUTH [None]
  - DYSPNOEA [None]
  - TACHYCARDIA [None]
